FAERS Safety Report 14943201 (Version 1)
Quarter: 2018Q2

REPORT INFORMATION
  Report Type: Spontaneous
  Country: US (occurrence: US)
  Receive Date: 20180528
  Receipt Date: 20180528
  Transmission Date: 20180711
  Serious: No
  Sender: FDA-Public Use
  Company Number: PHHY2018US002675

PATIENT
  Age: 42 Year
  Sex: Female

DRUGS (1)
  1. ATOPICA (ANIMAL HEALTH) [Suspect]
     Active Substance: CYCLOSPORINE
     Indication: PRODUCT USED FOR UNKNOWN INDICATION
     Dosage: 1 DF, BID
     Route: 062
     Dates: start: 20180401, end: 20180516

REACTIONS (1)
  - Accidental exposure to product [Unknown]
